FAERS Safety Report 7538759-7 (Version None)
Quarter: 2011Q2

REPORT INFORMATION
  Report Type: 
  Country: None (occurrence: None)
  Receive Date: 20110610
  Receipt Date: 20090316
  Transmission Date: 20111010
  Serious: Yes (Death, Other)
  Sender: FDA-Public Use
  Company Number: US-BAYER-200915512NA

PATIENT
  Age: 67 Year
  Sex: Male
  Weight: 77.098 kg

DRUGS (25)
  1. TRASYLOL [Suspect]
     Indication: CORONARY ARTERY BYPASS
     Dosage: 1 ML INITIAL TEST DOSE
     Route: 042
     Dates: start: 20020311, end: 20020311
  2. LASIX [Concomitant]
     Dosage: UNK
     Route: 042
     Dates: start: 20020312
  3. NIFEDIPINE [Concomitant]
     Dosage: 60 MG, QD
  4. FLAGYL [Concomitant]
     Dosage: UNK
     Dates: start: 20020315
  5. MAGNESIUM SULFATE [Concomitant]
     Dosage: 1 GRAM
  6. NEURONTIN [Concomitant]
     Dosage: 300 MG
     Dates: start: 20020327
  7. RED BLOOD CELLS [Concomitant]
     Dosage: 1 U, ONCE
     Route: 042
     Dates: start: 20020311
  8. FENTANYL [Concomitant]
  9. KEFZOL [Concomitant]
  10. NICARDIPINE HCL [Concomitant]
  11. DOPAMINE HCL [Concomitant]
     Dosage: UNK
     Route: 042
     Dates: start: 20020316
  12. LISINOPRIL [Concomitant]
     Dosage: 40 MG, QD
  13. ATENOLOL [Concomitant]
     Dosage: 25 MG, QD
  14. ISORDIL [Concomitant]
     Dosage: 30 MG, TID
  15. HEPARIN [Concomitant]
     Dosage: UNK
     Route: 042
     Dates: start: 20020314, end: 20020317
  16. TRASYLOL [Suspect]
     Dosage: 200 CC + 50CC/HOUR
     Route: 042
     Dates: start: 20020311, end: 20020311
  17. DOBUTAMINE HYDROCHLORIDE [Concomitant]
     Dosage: UNK
     Route: 042
     Dates: start: 20020314
  18. GENTAMICIN [Concomitant]
  19. VANCOMYCIN [Concomitant]
     Dosage: UNK
     Dates: start: 20020315
  20. ACETYLSALICYLIC ACID SRT [Concomitant]
     Dosage: 325 MG, QD
  21. INSULIN [Concomitant]
  22. LASIX [Concomitant]
     Dosage: 20 MG, QD
  23. CEPTAZ [Concomitant]
     Dosage: UNK
     Dates: start: 20020315
  24. NOVOLIN 70/30 [Concomitant]
     Dosage: 15 UNITS EVERY MORNING/8 UNITS EVERY NIGHT
     Route: 042
  25. VERSED [Concomitant]

REACTIONS (11)
  - DEPRESSION [None]
  - ADVERSE EVENT [None]
  - RENAL FAILURE CHRONIC [None]
  - ANXIETY [None]
  - DEATH [None]
  - CEREBROVASCULAR ACCIDENT [None]
  - FEAR [None]
  - PAIN [None]
  - ANHEDONIA [None]
  - RENAL FAILURE [None]
  - INJURY [None]
